FAERS Safety Report 21362155 (Version 1)
Quarter: 2022Q3

REPORT INFORMATION
  Report Type: Report from Study
  Country: CA (occurrence: CA)
  Receive Date: 20220922
  Receipt Date: 20220922
  Transmission Date: 20221027
  Serious: Yes (Other)
  Sender: FDA-Public Use
  Company Number: CA-JNJFOC-20220424137

PATIENT
  Age: 17 Year
  Sex: Female
  Weight: 65 kg

DRUGS (3)
  1. REMICADE [Suspect]
     Active Substance: INFLIXIMAB
     Indication: Colitis ulcerative
     Route: 042
     Dates: start: 20190605
  2. REMICADE [Suspect]
     Active Substance: INFLIXIMAB
     Dosage: 1000 MG?DOCTOR WANTED TO INCREASE THE PATIENT^S DOSE TO 20 MG/KG EVERY 4 WEEKS.
     Route: 042
  3. METHOTREXATE [Concomitant]
     Active Substance: METHOTREXATE
     Indication: Product used for unknown indication
     Route: 065

REACTIONS (5)
  - Ankylosing spondylitis [Unknown]
  - Sacroiliitis [Unknown]
  - Arthritis enteropathic [Unknown]
  - Drug level decreased [Unknown]
  - Off label use [Unknown]

NARRATIVE: CASE EVENT DATE: 20190605
